FAERS Safety Report 8196072 (Version 3)
Quarter: 2013Q1

REPORT INFORMATION
  Report Type: Report from Study
  Country: FR (occurrence: FR)
  Receive Date: 20111024
  Receipt Date: 20130305
  Transmission Date: 20140127
  Serious: Yes (Hospitalization)
  Sender: FDA-Public Use
  Company Number: FR-EISAI INC-E2080-00420-CLI-FR

PATIENT
  Sex: Male
  Weight: 25 kg

DRUGS (4)
  1. INOVELON [Suspect]
     Indication: LENNOX-GASTAUT SYNDROME
     Route: 048
     Dates: start: 20110615, end: 201108
  2. MICROPAKINE [Concomitant]
     Route: 048
     Dates: start: 20100304
  3. LAMICTAL [Concomitant]
     Route: 048
     Dates: start: 20070915
  4. KEPPRA [Concomitant]
     Route: 048
     Dates: start: 201108

REACTIONS (1)
  - Grand mal convulsion [Recovered/Resolved]
